FAERS Safety Report 15289565 (Version 2)
Quarter: 2018Q3

REPORT INFORMATION
  Report Type: Report from Study
  Country: US (occurrence: US)
  Receive Date: 20180817
  Receipt Date: 20180905
  Transmission Date: 20181010
  Serious: Yes (Death)
  Sender: FDA-Public Use
  Company Number: US-PFIZER INC-2018331604

PATIENT
  Age: 52 Year
  Sex: Female

DRUGS (1)
  1. AMLODIPINE BESILATE [Suspect]
     Active Substance: AMLODIPINE BESYLATE
     Dosage: UNK

REACTIONS (7)
  - Respiratory depression [Fatal]
  - Metabolic acidosis [Fatal]
  - Coma [Fatal]
  - Hypotension [Fatal]
  - Bradycardia [Fatal]
  - Toxicity to various agents [Fatal]
  - Depressed level of consciousness [Fatal]
